FAERS Safety Report 5249177-9 (Version None)
Quarter: 2007Q1

REPORT INFORMATION
  Report Type: 
  Country: None (occurrence: None)
  Receive Date: 20070228
  Receipt Date: 20070219
  Transmission Date: 20070707
  Serious: Yes (Other)
  Sender: FDA-Public Use
  Company Number: PHFR2006GB01819

PATIENT
  Age: 38 Year
  Sex: Male

DRUGS (10)
  1. NEORAL [Suspect]
     Indication: RENAL TRANSPLANT
     Dosage: 100 MG, BID
     Route: 065
     Dates: start: 20020101
  2. ACETYLSALICYLIC ACID SRT [Suspect]
     Route: 065
  3. ATENOLOL [Suspect]
     Indication: HYPERTENSION
     Route: 065
  4. ATORVASTATIN [Suspect]
     Route: 065
  5. DOXAZOSIN (NGX) [Suspect]
     Route: 065
  6. ISONIAZID [Suspect]
     Route: 065
  7. PERINDOPRIL ERBUMINE [Suspect]
     Indication: HYPERTENSION
     Route: 065
  8. PYRIDOXINE HCL [Suspect]
     Route: 065
  9. LAMIVUDINE [Suspect]
     Indication: HEPATITIS B
     Route: 065
  10. CELLCEPT [Suspect]
     Indication: RENAL TRANSPLANT
     Dosage: 500 MG, BID
     Route: 048
     Dates: start: 20020615, end: 20060315

REACTIONS (1)
  - SPERMATOZOA PROGRESSIVE MOTILITY DECREASED [None]
